FAERS Safety Report 7631979-2 (Version None)
Quarter: 2011Q3

REPORT INFORMATION
  Report Type: 
  Country: None (occurrence: None)
  Receive Date: 20110725
  Receipt Date: 20110518
  Transmission Date: 20111222
  Serious: Yes (Hospitalization)
  Sender: FDA-Public Use
  Company Number: US-BRISTOL-MYERS SQUIBB COMPANY-15755135

PATIENT
  Age: 88 Year
  Sex: Female

DRUGS (7)
  1. WARFARIN SODIUM [Suspect]
     Dosage: 1.5 TABLETS EVERY DAY
  2. FUROSEMIDE [Concomitant]
  3. DIGOXIN [Concomitant]
  4. DILTIAZEM HCL [Concomitant]
  5. OMEPRAZOLE [Concomitant]
  6. ATENOLOL [Concomitant]
  7. POTASSIUM [Concomitant]

REACTIONS (1)
  - INTERNATIONAL NORMALISED RATIO INCREASED [None]
